FAERS Safety Report 13128780 (Version 5)
Quarter: 2018Q1

REPORT INFORMATION
  Report Type: Report from Study
  Country: None (occurrence: US)
  Receive Date: 20170119
  Receipt Date: 20180328
  Transmission Date: 20180508
  Serious: Yes (Hospitalization, Other)
  Sender: FDA-Public Use
  Company Number: US-ABBVIE-16K-163-1786967-00

PATIENT
  Age: 63 Year
  Sex: Female
  Weight: 81.72 kg

DRUGS (11)
  1. PLAVIX [Concomitant]
     Active Substance: CLOPIDOGREL BISULFATE
     Indication: PRODUCT USED FOR UNKNOWN INDICATION
  2. HUMIRA [Suspect]
     Active Substance: ADALIMUMAB
     Indication: RHEUMATOID ARTHRITIS
     Route: 058
     Dates: start: 201710
  3. HUMIRA [Suspect]
     Active Substance: ADALIMUMAB
     Indication: PSORIATIC ARTHROPATHY
  4. ASPIRIN. [Concomitant]
     Active Substance: ASPIRIN
     Indication: PRODUCT USED FOR UNKNOWN INDICATION
  5. HYDROCHLOROTHIAZIDE. [Concomitant]
     Active Substance: HYDROCHLOROTHIAZIDE
     Indication: PRODUCT USED FOR UNKNOWN INDICATION
  6. CITALOPRAM [Concomitant]
     Active Substance: CITALOPRAM HYDROBROMIDE
     Indication: DEPRESSION
  7. OXYCODONE [Concomitant]
     Active Substance: OXYCODONE
     Indication: PRODUCT USED FOR UNKNOWN INDICATION
  8. ALPRAZOLAM. [Concomitant]
     Active Substance: ALPRAZOLAM
     Indication: PRODUCT USED FOR UNKNOWN INDICATION
  9. COLACE [Concomitant]
     Active Substance: DOCUSATE SODIUM
     Indication: PRODUCT USED FOR UNKNOWN INDICATION
  10. HUMIRA [Suspect]
     Active Substance: ADALIMUMAB
     Indication: PSORIASIS
     Route: 058
     Dates: start: 2014, end: 201701
  11. GABAPENTIN. [Concomitant]
     Active Substance: GABAPENTIN
     Indication: PAIN

REACTIONS (17)
  - Influenza [Recovered/Resolved]
  - Gastric infection [Recovered/Resolved]
  - Intracranial aneurysm [Not Recovered/Not Resolved]
  - Hepatic enzyme increased [Recovered/Resolved]
  - Bowel movement irregularity [Unknown]
  - Dizziness [Not Recovered/Not Resolved]
  - Fall [Not Recovered/Not Resolved]
  - Fatigue [Unknown]
  - Blood potassium decreased [Not Recovered/Not Resolved]
  - Skin cancer [Recovered/Resolved]
  - Nausea [Recovering/Resolving]
  - Asthenia [Not Recovered/Not Resolved]
  - Tremor [Not Recovered/Not Resolved]
  - Diarrhoea [Recovering/Resolving]
  - Vomiting [Unknown]
  - Dehydration [Recovered/Resolved]
  - Vertigo [Not Recovered/Not Resolved]

NARRATIVE: CASE EVENT DATE: 2016
